FAERS Safety Report 13019828 (Version 1)
Quarter: 2016Q4

REPORT INFORMATION
  Report Type: Spontaneous
  Country: US (occurrence: US)
  Receive Date: 20161212
  Receipt Date: 20161212
  Transmission Date: 20170207
  Serious: No
  Sender: FDA-Public Use
  Company Number: US-ROCHE-1767347

PATIENT
  Sex: Female

DRUGS (6)
  1. NAPROXEN. [Concomitant]
     Active Substance: NAPROXEN
     Route: 065
  2. ACTEMRA [Suspect]
     Active Substance: TOCILIZUMAB
     Indication: RHEUMATOID ARTHRITIS
     Route: 058
     Dates: start: 20160507
  3. FOLIC ACID. [Concomitant]
     Active Substance: FOLIC ACID
  4. PREDNISONE. [Concomitant]
     Active Substance: PREDNISONE
  5. SULFASALAZINE. [Concomitant]
     Active Substance: SULFASALAZINE
  6. TRAMADOL. [Concomitant]
     Active Substance: TRAMADOL

REACTIONS (3)
  - Pain in extremity [Unknown]
  - Injection site erythema [Unknown]
  - Pruritus [Unknown]
